FAERS Safety Report 20843748 (Version 1)
Quarter: 2022Q2

REPORT INFORMATION
  Report Type: Spontaneous
  Country: FR (occurrence: FR)
  Receive Date: 20220518
  Receipt Date: 20220518
  Transmission Date: 20220721
  Serious: Yes (Other)
  Sender: FDA-Public Use
  Company Number: None

PATIENT
  Age: 50 Year
  Sex: Female

DRUGS (2)
  1. ADALIMUMAB [Suspect]
     Active Substance: ADALIMUMAB
     Indication: Spondylitis
     Dosage: 40 MG, EVERY 10 DAYS
     Route: 058
     Dates: start: 201903, end: 202107
  2. ADALIMUMAB [Suspect]
     Active Substance: ADALIMUMAB
     Dosage: 40 MG, EVERY 14 DAYS
     Route: 058
     Dates: start: 202107, end: 20211001

REACTIONS (1)
  - Malignant melanoma [Not Recovered/Not Resolved]

NARRATIVE: CASE EVENT DATE: 20210901
